FAERS Safety Report 21065426 (Version 1)
Quarter: 2022Q3

REPORT INFORMATION
  Report Type: Spontaneous
  Country: RO (occurrence: RO)
  Receive Date: 20220711
  Receipt Date: 20220711
  Transmission Date: 20221026
  Serious: Yes (Hospitalization)
  Sender: FDA-Public Use
  Company Number: RO-NOVARTISPH-NVSC2022RO156242

PATIENT
  Sex: Male
  Weight: 81 kg

DRUGS (2)
  1. METHOTREXATE [Suspect]
     Active Substance: METHOTREXATE
     Indication: Rheumatoid arthritis
     Dosage: UNK (DOSE 15)
     Route: 065
  2. TOCILIZUMAB [Concomitant]
     Active Substance: TOCILIZUMAB
     Indication: Product used for unknown indication
     Dosage: UNK
     Route: 065

REACTIONS (4)
  - Lung perforation [Unknown]
  - Toxicity to various agents [Unknown]
  - Feeling abnormal [Unknown]
  - Product availability issue [Unknown]
